FAERS Safety Report 11549226 (Version 2)
Quarter: 2016Q1

REPORT INFORMATION
  Report Type: Spontaneous
  Country: BE (occurrence: BE)
  Receive Date: 20150924
  Receipt Date: 20160304
  Transmission Date: 20160525
  Serious: Yes (Hospitalization)
  Sender: FDA-Public Use
  Company Number: FR-SA-2015SA139055

PATIENT
  Sex: Male

DRUGS (3)
  1. SOLU-MEDROL [Concomitant]
     Active Substance: METHYLPREDNISOLONE SODIUM SUCCINATE
  2. LEMTRADA [Suspect]
     Active Substance: ALEMTUZUMAB
     Indication: MULTIPLE SCLEROSIS
     Dosage: 12 MG/DAYX5
     Route: 042
     Dates: start: 20150907
  3. DAFALGAN [Concomitant]
     Active Substance: ACETAMINOPHEN
     Dates: start: 20150907

REACTIONS (12)
  - Pain [Unknown]
  - Contusion [Unknown]
  - Oedema [Unknown]
  - Pyrexia [Unknown]
  - Influenza [Unknown]
  - Heart rate irregular [Unknown]
  - Fatigue [Unknown]
  - Lymphopenia [Unknown]
  - Respiratory disorder [Unknown]
  - Cardiac disorder [Unknown]
  - Weight decreased [Unknown]
  - Feeling hot [Unknown]

NARRATIVE: CASE EVENT DATE: 201509
